FAERS Safety Report 7729261-8 (Version None)
Quarter: 2011Q3

REPORT INFORMATION
  Report Type: 
  Country: None (occurrence: None)
  Receive Date: 20110906
  Receipt Date: 20110901
  Transmission Date: 20111222
  Serious: No
  Sender: FDA-Public Use
  Company Number: US-PFIZER INC-2011205104

PATIENT
  Sex: Female
  Weight: 79.365 kg

DRUGS (3)
  1. LEVONORGESTREL + ETHINYL ESTRADIOL [Concomitant]
     Indication: CONTRACEPTION
     Dosage: DAILY
  2. ADVIL CONGESTION RELIEF [Suspect]
     Indication: UPPER RESPIRATORY TRACT CONGESTION
     Dosage: EVERY FOUR HOURS
     Dates: start: 20110831
  3. ALBUTEROL SULFATE [Concomitant]
     Indication: ASTHMA
     Dosage: UNK

REACTIONS (3)
  - UPPER RESPIRATORY TRACT CONGESTION [None]
  - DYSPNOEA [None]
  - HEADACHE [None]
